FAERS Safety Report 5742620-8 (Version None)
Quarter: 2008Q2

REPORT INFORMATION
  Report Type: 
  Country: None (occurrence: None)
  Receive Date: 20080519
  Receipt Date: 20080509
  Transmission Date: 20081010
  Serious: Yes (Other)
  Sender: FDA-Public Use
  Company Number: CH-ABBOTT-08P-151-0437509-00

PATIENT
  Sex: Female

DRUGS (5)
  1. HUMIRA [Suspect]
     Indication: OFF LABEL USE
     Dates: start: 20071221, end: 20080229
  2. HUMIRA [Suspect]
     Indication: PSORIASIS
     Route: 058
     Dates: start: 20080401, end: 20080401
  3. HUMIRA [Suspect]
     Route: 058
     Dates: start: 20080407, end: 20080407
  4. HUMIRA [Suspect]
  5. METHOTREXATE [Concomitant]
     Indication: DRUG USE FOR UNKNOWN INDICATION
     Route: 048

REACTIONS (10)
  - ADVERSE DRUG REACTION [None]
  - ERYTHEMA [None]
  - INJECTION SITE ERYTHEMA [None]
  - INJECTION SITE REACTION [None]
  - PRURITUS [None]
  - PSORIASIS [None]
  - RASH [None]
  - RASH MACULAR [None]
  - ROSACEA [None]
  - SKIN EXFOLIATION [None]
